FAERS Safety Report 5213953-9 (Version None)
Quarter: 2007Q1

REPORT INFORMATION
  Report Type: 
  Country: None (occurrence: None)
  Receive Date: 20070122
  Receipt Date: 20070115
  Transmission Date: 20070707
  Serious: Yes (Hospitalization)
  Sender: FDA-Public Use
  Company Number: DE-BAYER-200710017BVD

PATIENT
  Age: 64 Year
  Sex: Male
  Weight: 69 kg

DRUGS (2)
  1. SORAFENIB [Suspect]
     Indication: RENAL CELL CARCINOMA STAGE UNSPECIFIED
     Dosage: TOTAL DAILY DOSE: 800 MG  UNIT DOSE: 400 MG
     Route: 048
     Dates: start: 20060824, end: 20061221
  2. CORTISONE, NOS [Concomitant]

REACTIONS (17)
  - ANAEMIA [None]
  - ANAEMIA OF CHRONIC DISEASE [None]
  - BLISTER [None]
  - COORDINATION ABNORMAL [None]
  - DYSPHONIA [None]
  - ERYTHEMA [None]
  - FATIGUE [None]
  - HYPOAESTHESIA [None]
  - METASTASES TO CENTRAL NERVOUS SYSTEM [None]
  - MYOPATHY [None]
  - MYOPATHY STEROID [None]
  - POLYNEUROPATHY [None]
  - RADIATION EXPOSURE [None]
  - RASH [None]
  - RENAL CELL CARCINOMA STAGE UNSPECIFIED [None]
  - SKIN TOXICITY [None]
  - TACHYARRHYTHMIA [None]
